FAERS Safety Report 13976711 (Version 1)
Quarter: 2017Q3

REPORT INFORMATION
  Report Type: Spontaneous
  Country: US (occurrence: US)
  Receive Date: 20170915
  Receipt Date: 20170915
  Transmission Date: 20171128
  Serious: No
  Sender: FDA-Public Use
  Company Number: US-TEVA-717377ACC

PATIENT
  Sex: Female
  Weight: 56.75 kg

DRUGS (7)
  1. METHOTREXATE INJECTION, USP [Suspect]
     Active Substance: METHOTREXATE
     Indication: ALOPECIA
     Dosage: 0.8 CC
     Route: 030
  2. PLAQUENIL [Concomitant]
     Active Substance: HYDROXYCHLOROQUINE SULFATE
     Dosage: 400 MILLIGRAM DAILY;
  3. METHOTREXATE INJECTION, USP [Suspect]
     Active Substance: METHOTREXATE
     Indication: RHEUMATOID ARTHRITIS
     Dosage: FORM STRENGTH: 0.7 CC
  4. BIOTIN [Concomitant]
     Active Substance: BIOTIN
     Dosage: 1000 UNITS PER DAY
  5. METHOTREXATE INJECTION, USP [Suspect]
     Active Substance: METHOTREXATE
     Indication: VOMITING
     Dosage: 4MG UPTO 10 MG
     Route: 048
  6. LEUCOVORIN. [Concomitant]
     Active Substance: LEUCOVORIN
     Dosage: 1 FOLLOWING METHOTREXATE (24 HOURS AFTER)
  7. METHOTREXATE INJECTION, USP [Suspect]
     Active Substance: METHOTREXATE
     Indication: NAUSEA
     Dosage: 0.4 CC

REACTIONS (5)
  - Diarrhoea [Unknown]
  - Nausea [Unknown]
  - Vomiting [Unknown]
  - Hepatic enzyme increased [Recovered/Resolved]
  - Alopecia [Unknown]
